FAERS Safety Report 22241618 (Version 2)
Quarter: 2023Q2

REPORT INFORMATION
  Report Type: Report from Study
  Country: US (occurrence: US)
  Receive Date: 20230421
  Receipt Date: 20230428
  Transmission Date: 20230722
  Serious: No
  Sender: FDA-Public Use
  Company Number: US-002147023-NVSC2023US087832

PATIENT
  Sex: Female
  Weight: 102.97 kg

DRUGS (10)
  1. COSENTYX [Suspect]
     Active Substance: SECUKINUMAB
     Indication: Ankylosing spondylitis
     Dosage: 150 MG
     Route: 058
  2. ISONIAZID [Suspect]
     Active Substance: ISONIAZID
     Indication: Ankylosing spondylitis
     Dosage: 300 MG
     Route: 065
  3. MUPIROCIN [Suspect]
     Active Substance: MUPIROCIN
     Indication: Ankylosing spondylitis
     Dosage: 2 %
     Route: 061
  4. LISINOPRIL [Suspect]
     Active Substance: LISINOPRIL
     Indication: Ankylosing spondylitis
     Dosage: 10 MG
     Route: 065
  5. SULFASALAZINE [Suspect]
     Active Substance: SULFASALAZINE
     Indication: Ankylosing spondylitis
     Dosage: 500 MG
     Route: 065
  6. ESOMEPRAZOLE [Suspect]
     Active Substance: ESOMEPRAZOLE
     Indication: Ankylosing spondylitis
     Dosage: 40 MG
     Route: 065
  7. NEURONTIN [Suspect]
     Active Substance: GABAPENTIN
     Indication: Ankylosing spondylitis
     Dosage: 300 MG
     Route: 065
  8. PYRIDOXINE [Suspect]
     Active Substance: PYRIDOXINE
     Indication: Ankylosing spondylitis
     Dosage: 50 MG
     Route: 065
  9. REGLAN [Suspect]
     Active Substance: METOCLOPRAMIDE HYDROCHLORIDE
     Indication: Ankylosing spondylitis
     Dosage: 10 MG
     Route: 065
  10. XANAX [Suspect]
     Active Substance: ALPRAZOLAM
     Indication: Ankylosing spondylitis
     Dosage: 0.5 MG
     Route: 065

REACTIONS (2)
  - Drug ineffective [Unknown]
  - Product use in unapproved indication [Unknown]
